FAERS Safety Report 7444030-4 (Version None)
Quarter: 2011Q2

REPORT INFORMATION
  Report Type: 
  Country: None (occurrence: None)
  Receive Date: 20110429
  Receipt Date: 20110420
  Transmission Date: 20111010
  Serious: No
  Sender: FDA-Public Use
  Company Number: US-BIOGENIDEC-2011BI015188

PATIENT
  Sex: Female

DRUGS (1)
  1. TYSABRI [Suspect]
     Indication: MULTIPLE SCLEROSIS
     Route: 042
     Dates: start: 20100211

REACTIONS (9)
  - BACK PAIN [None]
  - PAIN [None]
  - VISION BLURRED [None]
  - GAIT DISTURBANCE [None]
  - OPTIC NEURITIS [None]
  - MUSCLE TIGHTNESS [None]
  - PARAESTHESIA [None]
  - HYPOAESTHESIA [None]
  - DYSARTHRIA [None]
